FAERS Safety Report 10911028 (Version 1)
Quarter: 2015Q1

REPORT INFORMATION
  Report Type: Spontaneous
  Country: US (occurrence: US)
  Receive Date: 20150312
  Receipt Date: 20150312
  Transmission Date: 20150721
  Serious: Yes (Hospitalization, Other)
  Sender: FDA-Public Use
  Company Number: US-GLAXOSMITHKLINE-US2015GSK032281

PATIENT
  Age: 21 Year
  Sex: Female

DRUGS (2)
  1. LAMOTRIGINE. [Suspect]
     Active Substance: LAMOTRIGINE
     Dosage: 50 MG, UNK
  2. LAMOTRIGINE. [Suspect]
     Active Substance: LAMOTRIGINE
     Indication: PRODUCT USED FOR UNKNOWN INDICATION
     Dosage: 25 MG, QD

REACTIONS (10)
  - Rash morbilliform [Recovering/Resolving]
  - Liver function test abnormal [Recovering/Resolving]
  - Rash erythematous [Recovering/Resolving]
  - Lymphadenopathy [Unknown]
  - Pyrexia [Unknown]
  - Fatigue [Unknown]
  - Hypotension [Recovering/Resolving]
  - Skin exfoliation [Recovering/Resolving]
  - Myalgia [Unknown]
  - Drug reaction with eosinophilia and systemic symptoms [Unknown]
